FAERS Safety Report 17346424 (Version 4)
Quarter: 2020Q1

REPORT INFORMATION
  Report Type: Spontaneous
  Country: AU (occurrence: AU)
  Receive Date: 20200130
  Receipt Date: 20200305
  Transmission Date: 20200409
  Serious: Yes (Other)
  Sender: FDA-Public Use
  Company Number: NVSC2020AU019793

PATIENT
  Sex: Female

DRUGS (4)
  1. PREDNISONE. [Suspect]
     Active Substance: PREDNISONE
     Indication: GRAFT VERSUS HOST DISEASE
     Dosage: 25 MG, QD
     Route: 065
  2. VALGANCICLOVIR. [Suspect]
     Active Substance: VALGANCICLOVIR
     Indication: GRAFT VERSUS HOST DISEASE
     Dosage: 450 MG, QD
     Route: 065
  3. SIROLIMUS. [Suspect]
     Active Substance: SIROLIMUS
     Indication: GRAFT VERSUS HOST DISEASE
     Dosage: 1 MG, QD
     Route: 065
  4. POSACONAZOL [Suspect]
     Active Substance: POSACONAZOLE
     Indication: GRAFT VERSUS HOST DISEASE
     Dosage: 200 MG
     Route: 065
     Dates: start: 20191011

REACTIONS (5)
  - Graft versus host disease [Unknown]
  - Cushingoid [Unknown]
  - Diabetes mellitus [Unknown]
  - Condition aggravated [Unknown]
  - Disease recurrence [Unknown]
